FAERS Safety Report 25634142 (Version 1)
Quarter: 2025Q3

REPORT INFORMATION
  Report Type: Spontaneous
  Country: US (occurrence: US)
  Receive Date: 20250801
  Receipt Date: 20250801
  Transmission Date: 20251020
  Serious: Yes (Death, Hospitalization, Other)
  Sender: AMGEN
  Company Number: US-AMGEN-USASP2025148179

PATIENT
  Sex: Male

DRUGS (2)
  1. PREDNISONE [Suspect]
     Active Substance: PREDNISONE
     Indication: Exposure during pregnancy
     Dosage: 60 MILLIGRAM, QD
     Route: 064
  2. PREDNISONE [Suspect]
     Active Substance: PREDNISONE
     Route: 064

REACTIONS (7)
  - Pseudomonal sepsis [Fatal]
  - Gestational alloimmune liver disease [Unknown]
  - Adrenal insufficiency [Unknown]
  - Volvulus [Unknown]
  - Foetal growth restriction [Unknown]
  - Pericardial effusion [Unknown]
  - Premature baby [Unknown]
